FAERS Safety Report 7597303-9 (Version None)
Quarter: 2011Q3

REPORT INFORMATION
  Report Type: 
  Country: None (occurrence: None)
  Receive Date: 20110708
  Receipt Date: 20110413
  Transmission Date: 20111222
  Serious: No
  Sender: FDA-Public Use
  Company Number: US-GLAXOSMITHKLINE-A0922860A

PATIENT
  Age: 47 Year
  Sex: Male

DRUGS (5)
  1. FLOVENT [Suspect]
     Indication: ASTHMA
     Dosage: 4PUFF TWICE PER DAY
     Route: 055
  2. PREDNISONE [Concomitant]
     Indication: HYPERSENSITIVITY
  3. ZOCOR [Concomitant]
  4. SINGULAIR [Concomitant]
  5. ADVAIR DISKUS 100/50 [Concomitant]
     Route: 055

REACTIONS (2)
  - TOOTH EROSION [None]
  - BONE LOSS [None]
